FAERS Safety Report 8054984-3 (Version None)
Quarter: 2012Q1

REPORT INFORMATION
  Report Type: 
  Country: None (occurrence: None)
  Receive Date: 20120119
  Receipt Date: 20120116
  Transmission Date: 20120608
  Serious: Yes (Other)
  Sender: FDA-Public Use
  Company Number: US-PFIZER INC-2012012064

PATIENT
  Sex: Male
  Weight: 108.84 kg

DRUGS (1)
  1. VIAGRA [Suspect]
     Dosage: 200 MG, UNK
     Route: 048
     Dates: start: 20120116

REACTIONS (2)
  - PENILE SWELLING [None]
  - INCORRECT DOSE ADMINISTERED [None]
